FAERS Safety Report 18380446 (Version 2)
Quarter: 2020Q4

REPORT INFORMATION
  Report Type: Spontaneous
  Country: IT (occurrence: IT)
  Receive Date: 20201014
  Receipt Date: 20201017
  Transmission Date: 20210114
  Serious: Yes (Death, Other)
  Sender: FDA-Public Use
  Company Number: IT-AMGEN-ITASP2020163917

PATIENT

DRUGS (10)
  1. PEGFILGRASTIM [Suspect]
     Active Substance: PEGFILGRASTIM
     Indication: NEUTROPENIA
     Dosage: 06 MILLIGRAM, Q3WK
     Route: 058
  2. VINBLASTIN [Concomitant]
     Active Substance: VINBLASTINE
     Indication: HODGKIN^S DISEASE
     Dosage: 06 MILLIGRAM/SQ. METER (ON DAY ONE)
     Route: 042
  3. PROCARBAZINE [Concomitant]
     Active Substance: PROCARBAZINE
     Indication: HODGKIN^S DISEASE
     Dosage: 80 MILLIGRAM/SQ. METER, QD
     Route: 048
  4. VINCRISTINE [Concomitant]
     Active Substance: VINCRISTINE
     Indication: HODGKIN^S DISEASE
     Dosage: 1 MILLIGRAM
     Route: 042
  5. ETOPOSIDE. [Concomitant]
     Active Substance: ETOPOSIDE
     Indication: HODGKIN^S DISEASE
     Dosage: 100 MILLIGRAM/SQ. METER, QD
     Route: 042
  6. DARBEPOETIN ALFA [Suspect]
     Active Substance: DARBEPOETIN ALFA
     Indication: ANAEMIA
     Dosage: 500 MICROGRAM, Q3WK
     Route: 058
  7. CHLORAMBUCIL [Concomitant]
     Active Substance: CHLORAMBUCIL
     Indication: HODGKIN^S DISEASE
     Dosage: 06 MILLIGRAM/SQ. METER (ON DAY ONE TO SEVEN)
     Route: 048
  8. PREDNISONE. [Concomitant]
     Active Substance: PREDNISONE
     Indication: HODGKIN^S DISEASE
     Dosage: 50 MILLIGRAM, QD
     Route: 048
  9. ADRIAMYCIN [Concomitant]
     Active Substance: DOXORUBICIN HYDROCHLORIDE
     Indication: HODGKIN^S DISEASE
     Dosage: 30 MILLIGRAM/SQ. METER
  10. BLEOMYCIN [Concomitant]
     Active Substance: BLEOMYCIN SULFATE
     Indication: HODGKIN^S DISEASE
     Dosage: 7.5 MILLIGRAM/SQ. METER

REACTIONS (28)
  - Infection [Unknown]
  - Pulmonary embolism [Unknown]
  - Pneumonia [Unknown]
  - Diarrhoea [Unknown]
  - Leukopenia [Unknown]
  - Vomiting [Unknown]
  - Constipation [Unknown]
  - Lung disorder [Unknown]
  - Gastrointestinal disorder [Unknown]
  - Embolism venous [Unknown]
  - Cavernous sinus thrombosis [Unknown]
  - Nausea [Unknown]
  - Hodgkin^s disease [Fatal]
  - Neutropenia [Unknown]
  - Febrile neutropenia [Unknown]
  - Abdominal pain upper [Unknown]
  - Thrombocytopenia [Unknown]
  - Alopecia [Unknown]
  - Fatigue [Unknown]
  - Liver disorder [Unknown]
  - Herpes virus infection [Unknown]
  - Mucosal inflammation [Unknown]
  - Adverse event [Unknown]
  - Bone pain [Unknown]
  - Anaemia [Unknown]
  - Neurotoxicity [Unknown]
  - Influenza [Unknown]
  - Genitourinary symptom [Unknown]
